FAERS Safety Report 24632241 (Version 2)
Quarter: 2024Q4

REPORT INFORMATION
  Report Type: Spontaneous
  Country: IT (occurrence: IT)
  Receive Date: 20241118
  Receipt Date: 20241127
  Transmission Date: 20250114
  Serious: Yes (Life-Threatening, Hospitalization, Disabling)
  Sender: MYLAN
  Company Number: None

PATIENT
  Age: 62 Year
  Sex: Female
  Weight: 80 kg

DRUGS (3)
  1. FONDAPARINUX [Suspect]
     Active Substance: FONDAPARINUX
     Indication: Fibrin D dimer increased
     Dosage: 5 MILLIGRAM, QD (FONDAPARINUX 5 MG/DAY)
     Route: 065
     Dates: start: 20240914, end: 20240929
  2. BISOPROLOL FUMARATE [Concomitant]
     Active Substance: BISOPROLOL FUMARATE
     Indication: Hypertension
     Dosage: 1.25 MILLIGRAM (BISOPROLOLO 1.25)
     Route: 065
     Dates: start: 2024
  3. PERINDOPRIL [Concomitant]
     Active Substance: PERINDOPRIL
     Indication: Hypertension
     Dosage: 5 MILLIGRAM (PERINDOPRIL 5 MG)
     Route: 065
     Dates: start: 2024

REACTIONS (3)
  - Shock haemorrhagic [Recovering/Resolving]
  - Product prescribing issue [Unknown]
  - Intentional product misuse [Unknown]

NARRATIVE: CASE EVENT DATE: 20240914
